FAERS Safety Report 17270774 (Version 51)
Quarter: 2025Q3

REPORT INFORMATION
  Report Type: Report from Study
  Country: US (occurrence: US)
  Receive Date: 20200114
  Receipt Date: 20250829
  Transmission Date: 20251020
  Serious: Yes (Other)
  Sender: TAKEDA
  Company Number: US-SHIRE-US202001266

PATIENT
  Sex: Female
  Weight: 77.09 kg

DRUGS (64)
  1. .ALPHA.1-PROTEINASE INHIBITOR HUMAN [Suspect]
     Active Substance: .ALPHA.1-PROTEINASE INHIBITOR HUMAN
     Indication: Immune system disorder
     Dosage: 60 MILLIGRAM/KILOGRAM, 1/WEEK
  2. .ALPHA.1-PROTEINASE INHIBITOR HUMAN [Suspect]
     Active Substance: .ALPHA.1-PROTEINASE INHIBITOR HUMAN
     Indication: Hypergammaglobulinaemia
     Dosage: UNK UNK, 1/WEEK
     Dates: start: 20151104
  3. .ALPHA.1-PROTEINASE INHIBITOR HUMAN [Suspect]
     Active Substance: .ALPHA.1-PROTEINASE INHIBITOR HUMAN
     Dosage: UNK UNK, 1/WEEK
     Dates: start: 20160615
  4. .ALPHA.1-PROTEINASE INHIBITOR HUMAN [Suspect]
     Active Substance: .ALPHA.1-PROTEINASE INHIBITOR HUMAN
     Dosage: UNK UNK, 1/WEEK
  5. .ALPHA.1-PROTEINASE INHIBITOR HUMAN [Suspect]
     Active Substance: .ALPHA.1-PROTEINASE INHIBITOR HUMAN
     Dosage: UNK UNK, 1/WEEK
  6. .ALPHA.1-PROTEINASE INHIBITOR HUMAN [Suspect]
     Active Substance: .ALPHA.1-PROTEINASE INHIBITOR HUMAN
     Dosage: UNK UNK, Q4WEEKS
  7. .ALPHA.1-PROTEINASE INHIBITOR HUMAN [Suspect]
     Active Substance: .ALPHA.1-PROTEINASE INHIBITOR HUMAN
     Dosage: 60 MILLIGRAM/KILOGRAM, 1/WEEK
  8. CUVITRU [Suspect]
     Active Substance: HUMAN IMMUNOGLOBULIN G
     Indication: Immune system disorder
     Dosage: 10 GRAM, 1/WEEK
  9. CUVITRU [Suspect]
     Active Substance: HUMAN IMMUNOGLOBULIN G
     Indication: Hypergammaglobulinaemia
     Dosage: 10 GRAM, 1/WEEK
  10. PREDNISONE [Suspect]
     Active Substance: PREDNISONE
     Indication: Product used for unknown indication
  11. EPINEPHRINE [Concomitant]
     Active Substance: EPINEPHRINE
  12. ACETAMINOPHEN [Concomitant]
     Active Substance: ACETAMINOPHEN
  13. ALBUTEROL\IPRATROPIUM [Concomitant]
     Active Substance: ALBUTEROL\IPRATROPIUM
  14. IPRATROPIUM BROMIDE AND ALBUTEROL SULFATE [Concomitant]
     Active Substance: ALBUTEROL SULFATE\IPRATROPIUM BROMIDE
  15. CLONIDINE HYDROCHLORIDE [Concomitant]
     Active Substance: CLONIDINE HYDROCHLORIDE
  16. MELOXICAM [Concomitant]
     Active Substance: MELOXICAM
  17. CVS coenzyme q 10 [Concomitant]
  18. HYDROCHLOROTHIAZIDE [Concomitant]
     Active Substance: HYDROCHLOROTHIAZIDE
  19. SODIUM CHLORIDE [Concomitant]
     Active Substance: SODIUM CHLORIDE
  20. AUGMENTIN [Concomitant]
     Active Substance: AMOXICILLIN\CLAVULANATE POTASSIUM
  21. MAGNESIUM GLUCONATE [Concomitant]
     Active Substance: MAGNESIUM GLUCONATE
  22. FISH OIL\OMEGA-3 FATTY ACIDS [Concomitant]
     Active Substance: FISH OIL\OMEGA-3 FATTY ACIDS
  23. ASPIRIN [Concomitant]
     Active Substance: ASPIRIN
  24. LIDOCAINE [Concomitant]
     Active Substance: LIDOCAINE
  25. NUCALA [Concomitant]
     Active Substance: MEPOLIZUMAB
  26. CARDIZEM LA [Concomitant]
     Active Substance: DILTIAZEM HYDROCHLORIDE
  27. CRESTOR [Concomitant]
     Active Substance: ROSUVASTATIN CALCIUM
  28. CHLORTHALIDONE [Concomitant]
     Active Substance: CHLORTHALIDONE
  29. DIPHENHYDRAMINE HYDROCHLORIDE [Concomitant]
     Active Substance: DIPHENHYDRAMINE HYDROCHLORIDE
  30. Lmx [Concomitant]
  31. MONTELUKAST SODIUM [Concomitant]
     Active Substance: MONTELUKAST SODIUM
  32. CARVEDILOL [Concomitant]
     Active Substance: CARVEDILOL
  33. XHANCE [Concomitant]
     Active Substance: FLUTICASONE PROPIONATE
  34. CETIRIZINE HCL [Concomitant]
     Active Substance: CETIRIZINE HYDROCHLORIDE
  35. LOSARTAN [Concomitant]
     Active Substance: LOSARTAN
  36. DIPHENHYDRAMINE [Concomitant]
     Active Substance: DIPHENHYDRAMINE
     Indication: Anxiety
  37. DIPHENHYDRAMINE [Concomitant]
     Active Substance: DIPHENHYDRAMINE
     Indication: Blood pressure increased
  38. HERBALS\WITHANIA SOMNIFERA ROOT [Concomitant]
     Active Substance: HERBALS\WITHANIA SOMNIFERA ROOT
  39. LOSARTAN POTASSIUM [Concomitant]
     Active Substance: LOSARTAN POTASSIUM
  40. BREO ELLIPTA [Concomitant]
     Active Substance: FLUTICASONE FUROATE\VILANTEROL TRIFENATATE
  41. XYZAL [Concomitant]
     Active Substance: LEVOCETIRIZINE DIHYDROCHLORIDE
  42. PFIZER-BIONTECH COVID-19 VACCINE [Concomitant]
     Active Substance: TOZINAMERAN
  43. TEZEPELUMAB [Concomitant]
     Active Substance: TEZEPELUMAB
  44. ALBUTEROL SULFATE [Concomitant]
     Active Substance: ALBUTEROL SULFATE
  45. IPRATROPIUM [Concomitant]
     Active Substance: IPRATROPIUM
  46. FLUBLOK [Concomitant]
     Active Substance: INFLUENZA VIRUS VACCINE
  47. CEFUROXIME [Concomitant]
     Active Substance: CEFUROXIME
  48. PROPRANOLOL [Concomitant]
     Active Substance: PROPRANOLOL HYDROCHLORIDE
  49. CITALOPRAM [Concomitant]
     Active Substance: CITALOPRAM
  50. METOPROLOL [Concomitant]
     Active Substance: METOPROLOL
  51. FLUARIX NOS [Concomitant]
     Active Substance: INFLUENZA VIRUS VACCINE
  52. SUCRALFATE [Concomitant]
     Active Substance: SUCRALFATE
  53. FISH OIL [Concomitant]
     Active Substance: FISH OIL
  54. CEFDINIR [Concomitant]
     Active Substance: CEFDINIR
  55. WELLBUTRIN [Concomitant]
     Active Substance: BUPROPION HYDROCHLORIDE
  56. POTASSIUM [Concomitant]
     Active Substance: POTASSIUM
  57. LEVOFLOXACIN [Concomitant]
     Active Substance: LEVOFLOXACIN
  58. TRAMADOL [Concomitant]
     Active Substance: TRAMADOL
  59. ACETAMINOPHEN\HYDROCODONE [Concomitant]
     Active Substance: ACETAMINOPHEN\HYDROCODONE
  60. MELATONIN [Concomitant]
     Active Substance: MELATONIN
  61. AZITHROMYCIN [Concomitant]
     Active Substance: AZITHROMYCIN
  62. BUSPIRONE HCL [Concomitant]
     Active Substance: BUSPIRONE HYDROCHLORIDE
  63. KETOROLAC TROMETHAMINE [Concomitant]
     Active Substance: KETOROLAC TROMETHAMINE
  64. PREDNISOLONE ACETATE [Concomitant]
     Active Substance: PREDNISOLONE ACETATE

REACTIONS (54)
  - Rib fracture [Unknown]
  - Pneumonia [Unknown]
  - Arthritis infective [Unknown]
  - Contusion [Unknown]
  - Infusion site mass [Not Recovered/Not Resolved]
  - Infusion site haemorrhage [Unknown]
  - Multiple allergies [Unknown]
  - Infusion site discharge [Unknown]
  - Haematoma [Unknown]
  - Road traffic accident [Unknown]
  - Blood pressure increased [Recovering/Resolving]
  - Ear infection [Unknown]
  - Productive cough [Unknown]
  - Respiratory tract congestion [Unknown]
  - Body temperature increased [Unknown]
  - Seasonal allergy [Unknown]
  - Nasopharyngitis [Unknown]
  - Respiratory syncytial virus infection [Unknown]
  - Oedema [Unknown]
  - COVID-19 [Unknown]
  - Respiratory tract infection [Unknown]
  - Rash pruritic [Unknown]
  - Rash erythematous [Unknown]
  - Anxiety [Recovering/Resolving]
  - Limb mass [Unknown]
  - Influenza [Unknown]
  - Hypertension [Unknown]
  - Infusion site pain [Unknown]
  - Vision blurred [Unknown]
  - Illness [Recovering/Resolving]
  - Drug hypersensitivity [Unknown]
  - Computerised tomogram abnormal [Unknown]
  - Incorrect drug administration rate [Recovering/Resolving]
  - Product dose omission issue [Unknown]
  - Dyspnoea exertional [Unknown]
  - Product use in unapproved indication [Unknown]
  - Oropharyngeal pain [Unknown]
  - Infusion site swelling [Unknown]
  - Tooth abscess [Unknown]
  - Abdominal distension [Unknown]
  - Chest discomfort [Unknown]
  - Sinusitis [Not Recovered/Not Resolved]
  - Urticaria [Unknown]
  - Malaise [Recovering/Resolving]
  - Feeling abnormal [Recovering/Resolving]
  - Flushing [Unknown]
  - Rash [Unknown]
  - Bronchitis [Not Recovered/Not Resolved]
  - Fatigue [Recovering/Resolving]
  - Upper respiratory tract infection [Unknown]
  - Cough [Unknown]
  - Dizziness [Recovering/Resolving]
  - Headache [Not Recovered/Not Resolved]
  - Nausea [Unknown]
